FAERS Safety Report 8240884-2 (Version None)
Quarter: 2012Q1

REPORT INFORMATION
  Report Type: 
  Country: None (occurrence: None)
  Receive Date: 20120328
  Receipt Date: 20120321
  Transmission Date: 20120608
  Serious: Yes (Hospitalization)
  Sender: FDA-Public Use
  Company Number: GB-UCBSA-053820

PATIENT
  Age: 65 Year
  Sex: Female

DRUGS (11)
  1. LACTULOSE [Concomitant]
     Dosage: UNKNOWN DOSE
  2. LEVETIRACETAM [Suspect]
     Indication: EPILEPSY
     Route: 048
  3. CETIRIZINE [Concomitant]
     Dosage: UNKNOWN DOSE
  4. CLOBAZAM [Concomitant]
     Dosage: UNKNOWN DOSE
  5. AMOXICILLIN AND CLAVULANATE POTASSIUM [Concomitant]
     Indication: LOWER RESPIRATORY TRACT INFECTION
     Dosage: UNKNOWN DOSE
  6. LANSOPRAZOLE [Concomitant]
     Dosage: UNKNOWN DOSE
  7. ACETAMINOPHEN [Concomitant]
     Dosage: UNKNOWN DOSE
  8. CARBOCYSTEINE [Concomitant]
     Dosage: UNKNOWN DOSE
  9. AMOXICILLIN AND CLAVULANATE POTASSIUM [Concomitant]
     Indication: UROSEPSIS
     Dosage: UNKNOWN DOSE
  10. VALPROATE SODIUM [Suspect]
     Indication: EPILEPSY
     Route: 048
  11. DOCUSATE SODIUM [Concomitant]
     Dosage: UNKNOWN DOSE

REACTIONS (2)
  - THROMBOCYTOPENIA [None]
  - NEUTROPENIA [None]
